FAERS Safety Report 24109737 (Version 1)
Quarter: 2024Q3

REPORT INFORMATION
  Report Type: Spontaneous
  Country: BG (occurrence: BG)
  Receive Date: 20240718
  Receipt Date: 20240718
  Transmission Date: 20241016
  Serious: Yes (Hospitalization)
  Sender: PFIZER
  Company Number: BG-PFIZER INC-202400216201

PATIENT
  Age: 76 Year
  Sex: Female

DRUGS (1)
  1. IBRANCE [Suspect]
     Active Substance: PALBOCICLIB
     Dosage: 125 MG, 1X/DAY

REACTIONS (5)
  - Chest pain [Recovered/Resolved]
  - Movement disorder [Recovered/Resolved]
  - Fracture [Recovered/Resolved]
  - Dyspnoea [Recovered/Resolved]
  - Pulmonary artery thrombosis [Recovered/Resolved]
